FAERS Safety Report 8173041-9 (Version None)
Quarter: 2012Q1

REPORT INFORMATION
  Report Type: 
  Country: None (occurrence: None)
  Receive Date: 20120104
  Receipt Date: 20110919
  Transmission Date: 20120608
  Serious: No
  Sender: FDA-Public Use
  Company Number: 2011HGS-002554

PATIENT
  Age: 38 Year
  Sex: Female
  Weight: 72.5755 kg

DRUGS (10)
  1. ELAVIL (AMITRIPTYLINE HYDROCHLORIDE) (AMITRIPTYLINE HYDROCHLORIDE) [Concomitant]
  2. B COMPLEX (BECOSYM FORTE) (PYRIDOXINE HYDROCHLORIDE, THIAMINE HYDROCHL [Concomitant]
  3. BENLYSTA [Suspect]
     Indication: SYSTEMIC LUPUS ERYTHEMATOSUS
     Dosage: 1 IN 28 D, INTRAVENOUS DRIP
     Route: 041
     Dates: start: 20110420, end: 20110914
  4. ASA (ACETYLSALICYLIC ACID) (ACETYLSALICYLIC ACID) [Concomitant]
  5. VITAMIN D (ERGOCALCIFEROL) (ERGOCALCIFEROL) [Concomitant]
  6. POTASSIUM (POTASSIUM) (POTASSIUM) [Concomitant]
  7. PREDNISONE [Concomitant]
  8. B12 VITAMIN (CYANOCOBALAMIN) (CYANOCOBALAMIN) [Concomitant]
  9. ALPRAZOLAM [Concomitant]
  10. PLAQUENIL (HYDROXYCHLOROQUINE SULFATE) (HYDROXYCHLOROQUINE SULFATE) [Concomitant]

REACTIONS (7)
  - ARRHYTHMIA [None]
  - SENSATION OF PRESSURE [None]
  - PHARYNGITIS STREPTOCOCCAL [None]
  - BONE PAIN [None]
  - SYSTEMIC LUPUS ERYTHEMATOSUS [None]
  - FATIGUE [None]
  - ARTHRALGIA [None]
